FAERS Safety Report 4692570-3 (Version None)
Quarter: 2005Q2

REPORT INFORMATION
  Report Type: 
  Country: None (occurrence: None)
  Receive Date: 20050617
  Receipt Date: 20050609
  Transmission Date: 20051028
  Serious: Yes (Other)
  Sender: FDA-Public Use
  Company Number: US-MERCK-0506USA01683

PATIENT
  Age: 9 Year
  Sex: Male

DRUGS (4)
  1. ELSPAR [Suspect]
     Indication: ACUTE LYMPHOCYTIC LEUKAEMIA
     Route: 042
  2. MERCAPTOPURINE [Concomitant]
     Route: 065
  3. DAUNORUBICIN [Concomitant]
     Route: 065
  4. METHOTREXATE [Concomitant]
     Route: 065

REACTIONS (4)
  - DIPLOPIA [None]
  - HEADACHE [None]
  - INTRACRANIAL VENOUS SINUS THROMBOSIS [None]
  - PAPILLOEDEMA [None]
